FAERS Safety Report 5593504-X (Version None)
Quarter: 2008Q1

REPORT INFORMATION
  Report Type: 
  Country: None (occurrence: None)
  Receive Date: 20080116
  Receipt Date: 20080103
  Transmission Date: 20080703
  Serious: Yes (Hospitalization)
  Sender: FDA-Public Use
  Company Number: CH-ROCHE-539903

PATIENT
  Age: 98 Year
  Sex: Female

DRUGS (9)
  1. TOREM [Suspect]
     Indication: DRUG USE FOR UNKNOWN INDICATION
     Route: 048
  2. DIGOXIN [Suspect]
     Indication: DRUG USE FOR UNKNOWN INDICATION
     Route: 048
     Dates: start: 20070625
  3. ENATEC [Suspect]
     Indication: DRUG USE FOR UNKNOWN INDICATION
     Dosage: DOSE REDUCED
     Route: 048
  4. ENATEC [Suspect]
     Route: 048
  5. PLAVIX [Concomitant]
     Indication: DRUG USE FOR UNKNOWN INDICATION
     Dosage: FORM COATED TABLET FILM
     Route: 048
  6. DILATREND [Concomitant]
     Route: 048
  7. CORVATON [Concomitant]
     Route: 048
  8. ELTROXIN [Concomitant]
     Route: 048
  9. NITRODERM [Concomitant]
     Dosage: MEDICATED DRESSINGS
     Route: 062

REACTIONS (5)
  - ASTHENIA [None]
  - DECREASED APPETITE [None]
  - DRUG LEVEL INCREASED [None]
  - DRUG TOXICITY [None]
  - RENAL FAILURE CHRONIC [None]
